FAERS Safety Report 7671600-0 (Version None)
Quarter: 2011Q3

REPORT INFORMATION
  Report Type: 
  Country: None (occurrence: None)
  Receive Date: 20110809
  Receipt Date: 20110804
  Transmission Date: 20111222
  Serious: Yes (Death)
  Sender: FDA-Public Use
  Company Number: FR-PFIZER INC-2011178071

PATIENT
  Age: 58 Year
  Sex: Male

DRUGS (4)
  1. VFEND [Suspect]
     Dosage: 200 MG, 2X/DAY
     Route: 048
     Dates: end: 20080612
  2. CLARITHROMYCIN [Concomitant]
     Dosage: 1 G/DAY
     Dates: start: 20080101
  3. ANSATIPIN [Interacting]
     Dosage: 150 MG, 2X/DAY
     Dates: start: 20080101, end: 20080612
  4. CIPROFLOXACIN [Concomitant]
     Dosage: 1 G, UNK
     Dates: start: 20080101

REACTIONS (1)
  - DRUG INEFFECTIVE [None]
